FAERS Safety Report 6432094-6 (Version None)
Quarter: 2009Q4

REPORT INFORMATION
  Report Type: 
  Country: None (occurrence: None)
  Receive Date: 20091109
  Receipt Date: 20091104
  Transmission Date: 20100525
  Serious: Yes (Other)
  Sender: FDA-Public Use
  Company Number: DE-ROCHE-666703

PATIENT
  Age: 8 Year
  Sex: Male
  Weight: 28 kg

DRUGS (1)
  1. ROCEPHIN [Suspect]
     Dosage: ROUTE: INTRAVENOUS NOT OTHERWISE SPECIFIED
     Route: 042
     Dates: start: 20090822, end: 20090901

REACTIONS (1)
  - CHOLELITHIASIS [None]
